FAERS Safety Report 4588054-3 (Version None)
Quarter: 2005Q1

REPORT INFORMATION
  Report Type: 
  Country: None (occurrence: None)
  Receive Date: 20050216
  Receipt Date: 20050207
  Transmission Date: 20050727
  Serious: Yes (Hospitalization)
  Sender: FDA-Public Use
  Company Number: 2005027398

PATIENT
  Age: 22 Year
  Sex: Male

DRUGS (4)
  1. LINEZOLID SOLUTION, STERILE (LINEZOLID) [Suspect]
     Indication: ILL-DEFINED DISORDER
     Dosage: 600 MG (600 MG, 1 IN 1 D), INTRAVENOUS
     Route: 042
     Dates: start: 20041025, end: 20041105
  2. BACTRIM [Suspect]
     Indication: ILL-DEFINED DISORDER
     Dosage: ORAL
     Route: 048
     Dates: start: 20041106, end: 20041113
  3. VANCOMYCIN [Suspect]
     Indication: ILL-DEFINED DISORDER
     Dosage: 3 GRAM, INTRAVENOUS
     Route: 042
     Dates: start: 20041021, end: 20041217
  4. FUSIDATE SODIUM (FUSIDATE SODIUM) [Suspect]
     Indication: ILL-DEFINED DISORDER
     Dates: start: 20041115, end: 20041121

REACTIONS (13)
  - BLOOD ALKALINE PHOSPHATASE INCREASED [None]
  - BLOOD LACTATE DEHYDROGENASE INCREASED [None]
  - CAMPYLOBACTER INFECTION [None]
  - CHILLS [None]
  - DRUG RASH WITH EOSINOPHILIA AND SYSTEMIC SYMPTOMS [None]
  - ECZEMA [None]
  - EOSINOPHILIA [None]
  - EYELID OEDEMA [None]
  - HEART RATE INCREASED [None]
  - PYREXIA [None]
  - SKIN EXFOLIATION [None]
  - TOXIC SKIN ERUPTION [None]
  - WHITE BLOOD CELL COUNT INCREASED [None]
